FAERS Safety Report 11191621 (Version 1)
Quarter: 2015Q2

REPORT INFORMATION
  Report Type: Spontaneous
  Country: US (occurrence: None)
  Receive Date: 20150612
  Receipt Date: 20150612
  Transmission Date: 20150821
  Serious: Yes (Other)
  Sender: FDA-Public Use
  Company Number: None

PATIENT
  Age: 32 Year
  Sex: Male
  Weight: 63.5 kg

DRUGS (7)
  1. AMBIEN 10 MG GENERIC [Suspect]
     Active Substance: ZOLPIDEM TARTRATE
     Indication: SLEEP DISORDER
     Dosage: 1 PILL
     Route: 048
  2. NIFEDIPINE. [Concomitant]
     Active Substance: NIFEDIPINE
  3. DICLOFENAC [Concomitant]
     Active Substance: DICLOFENAC
  4. VERAPAMIL [Concomitant]
     Active Substance: VERAPAMIL HYDROCHLORIDE
  5. LORETAB [Concomitant]
  6. ZOFRAN [Concomitant]
     Active Substance: ONDANSETRON HYDROCHLORIDE
  7. VIMPAT [Concomitant]
     Active Substance: LACOSAMIDE

REACTIONS (6)
  - Hallucination [None]
  - Seizure [None]
  - Fall [None]
  - Therapy change [None]
  - Somnambulism [None]
  - Abnormal sleep-related event [None]

NARRATIVE: CASE EVENT DATE: 20150608
